FAERS Safety Report 5106077-2 (Version None)
Quarter: 2006Q3

REPORT INFORMATION
  Report Type: 
  Country: None (occurrence: None)
  Receive Date: 20060912
  Receipt Date: 20060829
  Transmission Date: 20061208
  Serious: Yes (Hospitalization)
  Sender: FDA-Public Use
  Company Number: 2006PV019156

PATIENT
  Age: 74 Year
  Sex: Female
  Weight: 84.8226 kg

DRUGS (33)
  1. BYETTA [Suspect]
     Indication: DIABETES MELLITUS NON-INSULIN-DEPENDENT
     Dosage: 5 MCG; BID; SC
     Route: 058
     Dates: start: 20060624, end: 20060710
  2. BYETTA [Suspect]
     Indication: DIABETES MELLITUS NON-INSULIN-DEPENDENT
     Dosage: 5 MCG; BID; SC
     Route: 058
     Dates: start: 20060720
  3. AVANDIA [Concomitant]
  4. METFORMIN [Concomitant]
  5. LASIX [Concomitant]
  6. COZAAR [Concomitant]
  7. IMDUR [Concomitant]
  8. SECTRAL [Concomitant]
  9. K-DUR 10 [Concomitant]
  10. FOLIC ACID [Concomitant]
  11. ARTHROTEC [Concomitant]
  12. TYLENOL [Concomitant]
  13. CHLORPHENIRAMINE MALEATE [Concomitant]
  14. ZOLOFT [Concomitant]
  15. FLOVENT [Concomitant]
  16. CITRACAL [Concomitant]
  17. LECITHIN [Concomitant]
  18. VITAMIN E [Concomitant]
  19. ASCORBIC ACID [Concomitant]
  20. CENTRUM SILVER [Concomitant]
  21. OPCON-A [Concomitant]
  22. COMBIVENT [Concomitant]
  23. FORTABS [Concomitant]
  24. TESSALON [Concomitant]
  25. WELCHOL [Concomitant]
  26. ZETIA [Concomitant]
  27. LEVOXYL [Concomitant]
  28. FEOSOL [Concomitant]
  29. NULEV [Concomitant]
  30. NEXIUM [Concomitant]
  31. VITAMIN B-12 [Concomitant]
  32. PLAVIX [Concomitant]
  33. ASPIRIN [Concomitant]

REACTIONS (3)
  - COLITIS ISCHAEMIC [None]
  - DIARRHOEA INFECTIOUS [None]
  - WEIGHT DECREASED [None]
